FAERS Safety Report 12477339 (Version 1)
Quarter: 2016Q2

REPORT INFORMATION
  Report Type: Spontaneous
  Country: FR (occurrence: FR)
  Receive Date: 20160617
  Receipt Date: 20160617
  Transmission Date: 20160815
  Serious: Yes (Hospitalization, Other)
  Sender: FDA-Public Use
  Company Number: FR-INDIVIOR LIMITED-INDV-091426-2016

PATIENT
  Age: 27 Year
  Sex: Male

DRUGS (2)
  1. SUBUTEX [Suspect]
     Active Substance: BUPRENORPHINE HYDROCHLORIDE
     Indication: PRODUCT USED FOR UNKNOWN INDICATION
     Dosage: ONE INJECTION SEVERAL TIMES A WEEK UNTIL 14 MG DAILY
     Route: 042
  2. AMPHETAMINE [Suspect]
     Active Substance: AMPHETAMINE
     Indication: PRODUCT USED FOR UNKNOWN INDICATION
     Dosage: UNK, SEVERAL TIMES PER MONTH
     Route: 051

REACTIONS (6)
  - Hepatitis cholestatic [Recovered/Resolved]
  - Injection site induration [Unknown]
  - Rash [Recovering/Resolving]
  - Drug abuse [Unknown]
  - Intentional product use issue [Unknown]
  - Drug dependence [Unknown]

NARRATIVE: CASE EVENT DATE: 20160420
